FAERS Safety Report 9616974 (Version 1)
Quarter: 2013Q4

REPORT INFORMATION
  Report Type: Spontaneous
  Country: FR (occurrence: FR)
  Receive Date: 20131011
  Receipt Date: 20131011
  Transmission Date: 20140711
  Serious: Yes (Life-Threatening)
  Sender: FDA-Public Use
  Company Number: FR-ASTRAZENECA-2013SE74516

PATIENT
  Age: 31 Year
  Sex: Female

DRUGS (3)
  1. XYLOCAINE [Suspect]
     Indication: ANAESTHESIA
     Route: 008
     Dates: start: 20120410, end: 20120410
  2. RAPIFEN [Suspect]
     Indication: POSTOPERATIVE ANALGESIA
     Dosage: ONCE/SINGLE ADMINISTRATION
     Route: 042
     Dates: start: 20120410, end: 20120410
  3. CEFAZOLINE PANPHARMA [Suspect]
     Indication: ANTIBIOTIC PROPHYLAXIS
     Route: 042
     Dates: start: 20120410, end: 20120410

REACTIONS (2)
  - Sensorimotor disorder [Recovered/Resolved]
  - Circulatory collapse [Recovered/Resolved]
